FAERS Safety Report 22978183 (Version 2)
Quarter: 2024Q1

REPORT INFORMATION
  Report Type: Spontaneous
  Country: US (occurrence: US)
  Receive Date: 20230925
  Receipt Date: 20240117
  Transmission Date: 20240410
  Serious: No
  Sender: FDA-Public Use
  Company Number: US-SA-SAC20230919000062

PATIENT
  Sex: Female
  Weight: 78 kg

DRUGS (41)
  1. DUPIXENT [Suspect]
     Active Substance: DUPILUMAB
     Indication: Asthma
     Dosage: 300 MG, QOW
     Route: 058
  2. XEMBIFY [Suspect]
     Active Substance: HUMAN IMMUNOGLOBULIN G
  3. OMEGA-3 FATTY ACIDS [Concomitant]
     Active Substance: OMEGA-3 FATTY ACIDS
  4. ZENPEP [Concomitant]
     Active Substance: PANCRELIPASE AMYLASE\PANCRELIPASE LIPASE\PANCRELIPASE PROTEASE
  5. WELLBUTRIN XL [Concomitant]
     Active Substance: BUPROPION HYDROCHLORIDE
  6. TYLENOL [Concomitant]
     Active Substance: ACETAMINOPHEN
  7. SPIRIVA [Concomitant]
     Active Substance: TIOTROPIUM BROMIDE MONOHYDRATE
  8. POTASSIUM GLUCONATE [Concomitant]
     Active Substance: POTASSIUM GLUCONATE
  9. LEVOTHYROXINE SODIUM [Concomitant]
     Active Substance: LEVOTHYROXINE SODIUM
  10. IRBESARTAN [Concomitant]
     Active Substance: IRBESARTAN
  11. DEPLIN [LEVOMEFOLIC ACID] [Concomitant]
  12. DAILY-VITE [Concomitant]
  13. ACIDOPHILUS/PECTIN [Concomitant]
  14. OMNICEF [Concomitant]
     Active Substance: CEFDINIR
  15. CLARITHROMYCIN [Concomitant]
     Active Substance: CLARITHROMYCIN
  16. OMEGA-3 FATTY ACIDS [Concomitant]
     Active Substance: OMEGA-3 FATTY ACIDS
  17. LEVALBUTEROL TARTRATE [Concomitant]
     Active Substance: LEVALBUTEROL TARTRATE
  18. NAMENDA [Concomitant]
     Active Substance: MEMANTINE HYDROCHLORIDE
  19. CLINDAMYCIN [Concomitant]
     Active Substance: CLINDAMYCIN
  20. METFORMIN HYDROCHLORIDE [Concomitant]
     Active Substance: METFORMIN HYDROCHLORIDE
  21. SYNTHROID [Concomitant]
     Active Substance: LEVOTHYROXINE SODIUM
  22. REMERON [Concomitant]
     Active Substance: MIRTAZAPINE
  23. DOXAZOSIN MESYLATE [Concomitant]
     Active Substance: DOXAZOSIN MESYLATE
  24. VITAMIN D3 [Concomitant]
     Active Substance: CHOLECALCIFEROL
  25. NABUMETONE [Concomitant]
     Active Substance: NABUMETONE
  26. CLARITHROMYCIN [Concomitant]
     Active Substance: CLARITHROMYCIN
  27. COZAAR [Concomitant]
     Active Substance: LOSARTAN POTASSIUM
  28. FISH OIL\OMEGA-3 FATTY ACIDS [Concomitant]
     Active Substance: FISH OIL\OMEGA-3 FATTY ACIDS
  29. DYMISTA [Concomitant]
     Active Substance: AZELASTINE HYDROCHLORIDE\FLUTICASONE PROPIONATE
  30. BESIVANCE [Concomitant]
     Active Substance: BESIFLOXACIN
  31. LEVEMIR [Concomitant]
     Active Substance: INSULIN DETEMIR
  32. LAMICTAL [Concomitant]
     Active Substance: LAMOTRIGINE
  33. SEROQUEL [Concomitant]
     Active Substance: QUETIAPINE FUMARATE
  34. NOVOLOG [Concomitant]
     Active Substance: INSULIN ASPART
  35. NEURONTIN [Concomitant]
     Active Substance: GABAPENTIN
  36. ZYRTEC [Concomitant]
     Active Substance: CETIRIZINE HYDROCHLORIDE
  37. POTASSIUM CHLORIDE [Concomitant]
     Active Substance: POTASSIUM CHLORIDE
  38. SYMBICORT [Concomitant]
     Active Substance: BUDESONIDE\FORMOTEROL FUMARATE DIHYDRATE
  39. NEXIUM [Concomitant]
     Active Substance: ESOMEPRAZOLE MAGNESIUM
  40. ACETYLCYSTEINE [Concomitant]
     Active Substance: ACETYLCYSTEINE
  41. BENADRYL [Concomitant]
     Active Substance: DIPHENHYDRAMINE HYDROCHLORIDE

REACTIONS (2)
  - Sinusitis [Unknown]
  - Injection site swelling [Unknown]
